FAERS Safety Report 5845083-7 (Version None)
Quarter: 2008Q3

REPORT INFORMATION
  Report Type: 
  Country: None (occurrence: None)
  Receive Date: 20080813
  Receipt Date: 20080813
  Transmission Date: 20090109
  Serious: Yes (Other)
  Sender: FDA-Public Use
  Company Number: None

PATIENT
  Age: 30 Year
  Sex: Female
  Weight: 77.1115 kg

DRUGS (3)
  1. AVELOX [Suspect]
     Indication: EAR INFECTION
     Dosage: DAILY PO
     Route: 048
     Dates: start: 20080623, end: 20080701
  2. AVELOX [Suspect]
     Indication: SINUSITIS
     Dosage: DAILY PO
     Route: 048
     Dates: start: 20080623, end: 20080701
  3. MIDRIN [Concomitant]

REACTIONS (4)
  - HEADACHE [None]
  - HYPOAESTHESIA [None]
  - MUSCULAR WEAKNESS [None]
  - PARAESTHESIA [None]
